FAERS Safety Report 6757950-0 (Version None)
Quarter: 2010Q2

REPORT INFORMATION
  Report Type: 
  Country: None (occurrence: None)
  Receive Date: 20100607
  Receipt Date: 20100602
  Transmission Date: 20101027
  Serious: Yes (Life-Threatening, Hospitalization)
  Sender: FDA-Public Use
  Company Number: JP-ASTRAZENECA-2010SE17649

PATIENT
  Age: 46 Year
  Sex: Male
  Weight: 77 kg

DRUGS (9)
  1. CRESTOR [Suspect]
     Indication: HYPERLIPIDAEMIA
     Route: 048
     Dates: start: 20091220, end: 20100101
  2. ASPIRIN [Suspect]
     Route: 048
  3. SELOKEN L [Concomitant]
     Route: 048
     Dates: start: 20091101
  4. OMEPRAL [Concomitant]
     Route: 048
     Dates: start: 20091101
  5. PLAVIX [Concomitant]
     Route: 048
     Dates: start: 20091101
  6. SIGMART [Concomitant]
     Route: 048
     Dates: start: 20091101
  7. NORVASC [Concomitant]
     Route: 048
     Dates: start: 20091101
  8. MINITRO [Concomitant]
     Dosage: DOSE UNKNOWN
     Route: 062
     Dates: start: 20091101
  9. LASIX [Concomitant]
     Route: 048

REACTIONS (2)
  - CORONARY ARTERY BYPASS [None]
  - INTERSTITIAL LUNG DISEASE [None]
